FAERS Safety Report 23733105 (Version 1)
Quarter: 2024Q2

REPORT INFORMATION
  Report Type: Spontaneous
  Country: US (occurrence: US)
  Receive Date: 20240411
  Receipt Date: 20240411
  Transmission Date: 20240716
  Serious: No
  Sender: FDA-Public Use
  Company Number: US-PFIZER INC-202400080859

PATIENT
  Sex: Female

DRUGS (2)
  1. PRISTIQ EXTENDED-RELEASE [Suspect]
     Active Substance: DESVENLAFAXINE SUCCINATE
  2. LITHIUM [Suspect]
     Active Substance: LITHIUM

REACTIONS (4)
  - Product storage error [Unknown]
  - Headache [Unknown]
  - Panic attack [Recovering/Resolving]
  - Tremor [Unknown]
